FAERS Safety Report 5100195-0 (Version None)
Quarter: 2006Q3

REPORT INFORMATION
  Report Type: 
  Country: None (occurrence: None)
  Receive Date: 20060728
  Receipt Date: 20051026
  Transmission Date: 20061208
  Serious: Yes (Hospitalization)
  Sender: FDA-Public Use
  Company Number: 200509544

PATIENT
  Age: 54 Year
  Sex: Male

DRUGS (1)
  1. CARIMUNE [Suspect]
     Indication: POLYMYOSITIS
     Dosage: SEE IMAGE
     Route: 042
     Dates: start: 20050401

REACTIONS (1)
  - RENAL FAILURE ACUTE [None]
